FAERS Safety Report 8023393 (Version 4)
Quarter: 2014Q2

REPORT INFORMATION
  Report Type: Spontaneous
  Country: US (occurrence: US)
  Receive Date: 20110706
  Receipt Date: 20140624
  Transmission Date: 20141212
  Serious: Yes (Hospitalization)
  Sender: FDA-Public Use
  Company Number: US-GLAXOSMITHKLINE-A0934977A

PATIENT
  Sex: Male

DRUGS (7)
  1. AVANDIA [Suspect]
     Indication: DIABETES MELLITUS
     Dosage: 8MG PER DAY
     Route: 048
     Dates: start: 200205, end: 2007
  2. METOPROLOL [Concomitant]
  3. METFORMIN [Concomitant]
  4. NORVASC [Concomitant]
  5. HCTZ [Concomitant]
  6. GLYBURIDE [Concomitant]
  7. CLONAZEPAM [Concomitant]

REACTIONS (6)
  - Myocardial infarction [Not Recovered/Not Resolved]
  - Ischaemic stroke [Unknown]
  - Brain stem stroke [Unknown]
  - Hemiparesis [Unknown]
  - Arteriosclerosis coronary artery [Unknown]
  - Neuropathy peripheral [Unknown]
